FAERS Safety Report 7092778-6 (Version None)
Quarter: 2010Q4

REPORT INFORMATION
  Report Type: 
  Country: None (occurrence: None)
  Receive Date: 20101109
  Receipt Date: 20101109
  Transmission Date: 20110411
  Serious: Yes (Other)
  Sender: FDA-Public Use
  Company Number: None

PATIENT
  Age: 5 Year
  Sex: Male
  Weight: 26.7622 kg

DRUGS (2)
  1. OXCARBAZEPINE [Suspect]
     Indication: CONVULSION
     Dosage: 500MG PO BID    OCTOBER
     Route: 048
  2. LAMOTRIGINE [Concomitant]

REACTIONS (4)
  - AGGRESSION [None]
  - CONVULSION [None]
  - INSOMNIA [None]
  - PRODUCT SUBSTITUTION ISSUE [None]
